FAERS Safety Report 15155771 (Version 1)
Quarter: 2018Q3

REPORT INFORMATION
  Report Type: Spontaneous
  Country: GB (occurrence: GB)
  Receive Date: 20180717
  Receipt Date: 20180717
  Transmission Date: 20181010
  Serious: Yes (Other)
  Sender: FDA-Public Use
  Company Number: GB-US WORLDMEDS, LLC-STA_00018811

PATIENT
  Sex: Male

DRUGS (1)
  1. APOMORPHINE HYDROCHLORIDE [Suspect]
     Active Substance: APOMORPHINE HYDROCHLORIDE
     Indication: PARKINSON^S DISEASE
     Dosage: 4 MG/HOUR WITH A 4 MG BOLUS (FREQUENCY OF BOLUS UNKNOWN)

REACTIONS (3)
  - Orthostatic hypotension [Not Recovered/Not Resolved]
  - Nodule [Not Recovered/Not Resolved]
  - Epilepsy [Not Recovered/Not Resolved]
